FAERS Safety Report 9380362 (Version 1)
Quarter: 2013Q3

REPORT INFORMATION
  Report Type: Spontaneous
  Country: US (occurrence: US)
  Receive Date: 20130702
  Receipt Date: 20130702
  Transmission Date: 20140515
  Serious: Yes (Death, Hospitalization)
  Sender: FDA-Public Use
  Company Number: US-BAYER-2013-078011

PATIENT
  Age: 82 Year
  Sex: Male

DRUGS (3)
  1. GADAVIST [Suspect]
     Indication: NUCLEAR MAGNETIC RESONANCE IMAGING BRAIN
     Dosage: 10 ML, ONCE
     Route: 042
     Dates: start: 20130622, end: 20130622
  2. GADAVIST [Suspect]
     Indication: DIZZINESS
  3. GADAVIST [Suspect]
     Indication: VERTIGO

REACTIONS (3)
  - Anaphylactic reaction [None]
  - Burning sensation [None]
  - Cardiac arrest [Fatal]
